FAERS Safety Report 7917389-9 (Version None)
Quarter: 2011Q4

REPORT INFORMATION
  Report Type: 
  Country: None (occurrence: None)
  Receive Date: 20111114
  Receipt Date: 20111031
  Transmission Date: 20120403
  Serious: Yes (Other)
  Sender: FDA-Public Use
  Company Number: TPA2011A07357

PATIENT
  Age: 47 Year
  Sex: Male

DRUGS (1)
  1. ADENURIC (FEBUXOSTAT) [Suspect]
     Indication: HYPERURICAEMIA
     Dosage: 80 MG (80 MG, 1 IN 1 D), ORAL
     Route: 048
     Dates: start: 20110828, end: 20110912

REACTIONS (6)
  - DEPRESSION SUICIDAL [None]
  - ARTHRALGIA [None]
  - VISUAL FIELD DEFECT [None]
  - VOMITING [None]
  - NAUSEA [None]
  - MYALGIA [None]
